FAERS Safety Report 10240698 (Version 1)
Quarter: 2014Q2

REPORT INFORMATION
  Report Type: Report from Study
  Country: GB (occurrence: GB)
  Receive Date: 20140617
  Receipt Date: 20140617
  Transmission Date: 20141212
  Serious: Yes (Disabling)
  Sender: FDA-Public Use
  Company Number: GB-EISAI INC-E7389-05181-SOL-GB

PATIENT
  Age: 49 Year
  Sex: Female

DRUGS (1)
  1. HALAVEN [Suspect]
     Indication: BREAST CANCER METASTATIC
     Dosage: 1.23 MG/M2
     Route: 041
     Dates: start: 20140521, end: 20140528

REACTIONS (1)
  - Hepatomegaly [Not Recovered/Not Resolved]
